FAERS Safety Report 23342011 (Version 1)
Quarter: 2023Q4

REPORT INFORMATION
  Report Type: Spontaneous
  Country: ES (occurrence: ES)
  Receive Date: 20231227
  Receipt Date: 20231227
  Transmission Date: 20240110
  Serious: Yes (Other)
  Sender: FDA-Public Use
  Company Number: None

PATIENT
  Age: 70 Year
  Sex: Male

DRUGS (7)
  1. BRODALUMAB [Suspect]
     Active Substance: BRODALUMAB
     Indication: Psoriasis
     Route: 058
     Dates: start: 20230802, end: 20230802
  2. BRODALUMAB [Suspect]
     Active Substance: BRODALUMAB
     Route: 058
     Dates: start: 20230726, end: 20230726
  3. BRODALUMAB [Suspect]
     Active Substance: BRODALUMAB
     Route: 058
     Dates: start: 20230809, end: 20231109
  4. TELMISARTAN CINFA [Concomitant]
     Indication: Hypertension
     Route: 048
     Dates: start: 20190312
  5. METFORMINA KERN PHARMA [Concomitant]
     Indication: Type 2 diabetes mellitus
     Route: 048
     Dates: start: 20140416
  6. ASPIRIN [Concomitant]
     Active Substance: ASPIRIN
     Indication: Product used for unknown indication
     Route: 048
     Dates: start: 20120327
  7. SIMVASTATINA TEVA RIMAFAR [Concomitant]
     Indication: Product used for unknown indication
     Route: 048
     Dates: start: 20120305

REACTIONS (2)
  - Peripheral sensorimotor neuropathy [Not Recovered/Not Resolved]
  - Paraesthesia [Not Recovered/Not Resolved]

NARRATIVE: CASE EVENT DATE: 20230914
